FAERS Safety Report 21458826 (Version 1)
Quarter: 2022Q4

REPORT INFORMATION
  Report Type: Spontaneous
  Country: US (occurrence: None)
  Receive Date: 20221013
  Receipt Date: 20221013
  Transmission Date: 20230112
  Serious: Yes (Other)
  Sender: FDA-Public Use
  Company Number: None

PATIENT
  Age: 33 Year
  Sex: Female
  Weight: 67.95 kg

DRUGS (1)
  1. PROGESTERONE [Suspect]
     Active Substance: PROGESTERONE
     Indication: Infertility
     Dosage: FREQUENCY : DAILY;?
     Route: 030
     Dates: start: 20200922, end: 20210706

REACTIONS (1)
  - Abscess [None]

NARRATIVE: CASE EVENT DATE: 20210707
